FAERS Safety Report 11265682 (Version 1)
Quarter: 2015Q3

REPORT INFORMATION
  Report Type: Spontaneous
  Country: FR (occurrence: FR)
  Receive Date: 20150713
  Receipt Date: 20150713
  Transmission Date: 20151125
  Serious: Yes (Hospitalization)
  Sender: FDA-Public Use
  Company Number: FR-GE HEALTHCARE MEDICAL DIAGNOSTICS-VISP-PR-1507S-0251

PATIENT
  Age: 68 Year
  Sex: Female

DRUGS (18)
  1. VISIPAQUE [Suspect]
     Active Substance: IODIXANOL
     Indication: DIAGNOSTIC PROCEDURE
     Dosage: DOSE NOT REPORTED
     Route: 042
     Dates: start: 20150611, end: 20150611
  2. PRIMPERAN [Suspect]
     Active Substance: METOCLOPRAMIDE HYDROCHLORIDE
     Route: 048
     Dates: start: 20150605, end: 20150615
  3. UVEDOSE [Suspect]
     Active Substance: CHOLECALCIFEROL
     Route: 048
     Dates: start: 20150528, end: 20150615
  4. RAMIPRIL. [Concomitant]
     Active Substance: RAMIPRIL
  5. INEXIUM [Concomitant]
     Active Substance: ESOMEPRAZOLE
  6. DEPAKINE [Concomitant]
     Active Substance: VALPROATE SODIUM
  7. XANAX [Concomitant]
     Active Substance: ALPRAZOLAM
  8. VISIPAQUE [Suspect]
     Active Substance: IODIXANOL
     Indication: PRODUCT USED FOR UNKNOWN INDICATION
     Dosage: DOSE NOT REPORTED
     Route: 042
     Dates: start: 20150610, end: 20150610
  9. PROCORALAN [Concomitant]
     Active Substance: IVABRADINE
  10. TARDYFERON [Concomitant]
     Active Substance: FERROUS SULFATE\FOLIC ACID
  11. TEMESTA [Suspect]
     Active Substance: LORAZEPAM
     Route: 048
     Dates: start: 20150604, end: 20150615
  12. BISOCE [Concomitant]
     Active Substance: BISOPROLOL
  13. KARDEGIC [Concomitant]
     Active Substance: ASPIRIN LYSINE
  14. LOVENOX [Suspect]
     Active Substance: ENOXAPARIN SODIUM
     Route: 058
     Dates: start: 20150612, end: 20150615
  15. TAHOR [Concomitant]
     Active Substance: ATORVASTATIN CALCIUM
  16. BRILIQUE [Concomitant]
     Active Substance: TICAGRELOR
  17. LEVOTHYROX [Concomitant]
     Active Substance: LEVOTHYROXINE
  18. LASILIX [Concomitant]
     Active Substance: FUROSEMIDE

REACTIONS (1)
  - Rash maculo-papular [Unknown]

NARRATIVE: CASE EVENT DATE: 20150613
